FAERS Safety Report 6128381-1 (Version None)
Quarter: 2009Q1

REPORT INFORMATION
  Report Type: 
  Country: None (occurrence: None)
  Receive Date: 20090323
  Receipt Date: 20080421
  Transmission Date: 20090719
  Serious: No
  Sender: FDA-Public Use
  Company Number: US-ABBOTT-08P-163-0448294-00

PATIENT
  Sex: Female
  Weight: 63.56 kg

DRUGS (2)
  1. ERYTHROMYCIN ETHYLSUCCINATE [Suspect]
     Indication: LOCALISED INFECTION
     Route: 048
     Dates: start: 20080417, end: 20080421
  2. OMEPRAZOLE [Concomitant]
     Indication: GASTROOESOPHAGEAL REFLUX DISEASE
     Route: 048
     Dates: start: 19980101

REACTIONS (2)
  - RASH PAPULAR [None]
  - URTICARIA [None]
